FAERS Safety Report 21523590 (Version 2)
Quarter: 2022Q4

REPORT INFORMATION
  Report Type: Spontaneous
  Country: DE (occurrence: DE)
  Receive Date: 20221029
  Receipt Date: 20221031
  Transmission Date: 20230113
  Serious: Yes (Other)
  Sender: FDA-Public Use
  Company Number: DE-TORRENT-00023639

PATIENT
  Sex: Female

DRUGS (1)
  1. VENLAFAXINE [Interacting]
     Active Substance: VENLAFAXINE HYDROCHLORIDE
     Indication: Depression
     Dosage: 112.5 MG DAILY DOSAGE
     Route: 065
     Dates: start: 20210901, end: 20221019

REACTIONS (10)
  - Alcohol interaction [Unknown]
  - Loss of consciousness [Recovered/Resolved]
  - Personality change [Recovered/Resolved]
  - Somnolence [Recovered/Resolved]
  - Speech disorder [Recovered/Resolved]
  - Lacrimation decreased [Recovered/Resolved]
  - Memory impairment [Recovered/Resolved]
  - Disorientation [Recovered/Resolved]
  - Trance [Recovered/Resolved]
  - Feeling abnormal [Recovered/Resolved]
